FAERS Safety Report 20556373 (Version 1)
Quarter: 2022Q1

REPORT INFORMATION
  Report Type: Spontaneous
  Country: FR (occurrence: FR)
  Receive Date: 20220305
  Receipt Date: 20220305
  Transmission Date: 20220423
  Serious: Yes (Death, Other)
  Sender: FDA-Public Use
  Company Number: FR-AMGEN-FRASP2022034605

PATIENT
  Age: 43 Year
  Sex: Male

DRUGS (2)
  1. PROLIA [Suspect]
     Active Substance: DENOSUMAB
     Indication: Hypercalcaemia
     Dosage: 60 MILLIGRAM, Q3MO
     Route: 058
  2. PROLIA [Suspect]
     Active Substance: DENOSUMAB
     Indication: Fracture

REACTIONS (19)
  - Sepsis [Fatal]
  - Crystal nephropathy [Unknown]
  - Spinal fracture [Unknown]
  - Skin necrosis [Unknown]
  - Multisystem inflammatory syndrome [Unknown]
  - Arteriovenous fistula thrombosis [Unknown]
  - Crystal nephropathy [Unknown]
  - Humerus fracture [Unknown]
  - Transplant rejection [Unknown]
  - Transplant failure [Unknown]
  - Vitamin D increased [Unknown]
  - Bone metabolism biochemical marker increased [Unknown]
  - Hypoalbuminaemia [Unknown]
  - C-reactive protein increased [Unknown]
  - Spondylitis [Unknown]
  - Sacroiliitis [Unknown]
  - Hypercalcaemia [Unknown]
  - Off label use [Unknown]
  - Pain [Unknown]
